FAERS Safety Report 19955375 (Version 2)
Quarter: 2021Q4

REPORT INFORMATION
  Report Type: Spontaneous
  Country: CO (occurrence: CO)
  Receive Date: 20211013
  Receipt Date: 20211020
  Transmission Date: 20220304
  Serious: Yes (Death, Hospitalization, Other)
  Sender: FDA-Public Use
  Company Number: CO-BIOMARINAP-CO-2021-139034

PATIENT
  Age: 13 Year
  Sex: Female
  Weight: 22 kg

DRUGS (1)
  1. NAGLAZYME [Suspect]
     Active Substance: GALSULFASE
     Indication: Mucopolysaccharidosis VI
     Dosage: 22 MILLIGRAM, QW
     Route: 042
     Dates: start: 201903

REACTIONS (5)
  - Cardio-respiratory arrest [Fatal]
  - Umbilical hernia [Unknown]
  - General physical condition abnormal [Unknown]
  - Procedural complication [Unknown]
  - Haemoglobinaemia [Unknown]

NARRATIVE: CASE EVENT DATE: 20211007
